FAERS Safety Report 10211378 (Version 1)
Quarter: 2014Q2

REPORT INFORMATION
  Report Type: Spontaneous
  Country: IT (occurrence: IT)
  Receive Date: 20140602
  Receipt Date: 20140602
  Transmission Date: 20141212
  Serious: Yes (Hospitalization)
  Sender: FDA-Public Use
  Company Number: PHHY2014IT062975

PATIENT
  Age: 31 Year
  Sex: Female

DRUGS (2)
  1. AMOXICILLIN [Suspect]
     Dosage: 3 DF, QD
     Route: 048
     Dates: start: 20140512, end: 20140518
  2. PARACETAMOL [Concomitant]

REACTIONS (2)
  - Tonsillitis [Recovering/Resolving]
  - Drug ineffective [Recovering/Resolving]
